FAERS Safety Report 6722922-9 (Version None)
Quarter: 2010Q2

REPORT INFORMATION
  Report Type: 
  Country: None (occurrence: None)
  Receive Date: 20100513
  Receipt Date: 20100506
  Transmission Date: 20101027
  Serious: Yes (Hospitalization, Other)
  Sender: FDA-Public Use
  Company Number: US-BIOGENIDEC-2010BI010018

PATIENT
  Age: 52 Year
  Sex: Female
  Weight: 72 kg

DRUGS (6)
  1. TYSABRI [Suspect]
     Indication: MULTIPLE SCLEROSIS
     Route: 042
     Dates: start: 20090803
  2. BUSPAR [Concomitant]
     Route: 048
  3. PROVIGIL [Concomitant]
     Route: 048
  4. BISOPROLOL [Concomitant]
     Route: 048
  5. PROTONIX [Concomitant]
     Route: 048
  6. WELLBUTRIN XL [Concomitant]
     Route: 048

REACTIONS (1)
  - UTERINE LEIOMYOMA [None]
